FAERS Safety Report 7736863-1 (Version None)
Quarter: 2011Q3

REPORT INFORMATION
  Report Type: 
  Country: None (occurrence: None)
  Receive Date: 20110908
  Receipt Date: 20110830
  Transmission Date: 20111222
  Serious: Yes (Hospitalization, Other)
  Sender: FDA-Public Use
  Company Number: PHFR2011GB05077

PATIENT
  Sex: Female

DRUGS (5)
  1. DIAZEPAM [Concomitant]
  2. ARIPIPRAZOLE [Concomitant]
  3. MIRTAZAPINE [Concomitant]
  4. LITHIUM CARBONATE [Concomitant]
  5. CLOZAPINE [Suspect]
     Indication: SCHIZOPHRENIA
     Dosage: 62.5 MG, QD
     Route: 048
     Dates: start: 20110822

REACTIONS (4)
  - CHEST PAIN [None]
  - PAIN [None]
  - BLOOD PRESSURE ORTHOSTATIC INCREASED [None]
  - HYPERTENSION [None]
